FAERS Safety Report 8875586 (Version 1)
Quarter: 2012Q4

REPORT INFORMATION
  Report Type: 
  Country: US (occurrence: US)
  Receive Date: 20121030
  Receipt Date: 20121030
  Transmission Date: 20130627
  Serious: No
  Sender: FDA-Public Use
  Company Number: US-ABBOTT-12P-163-0946132-00

PATIENT
  Sex: Female
  Weight: 57.66 kg

DRUGS (5)
  1. KALETRA TABLETS 200MG/50MG [Suspect]
     Indication: HIV INFECTION
     Dosage: 200/50 mg tab-two tabs twice a day
     Route: 048
     Dates: start: 20120517
  2. COMBIVIR [Concomitant]
     Indication: HIV INFECTION
     Dates: start: 201205
  3. IRON [Concomitant]
     Indication: VITAMIN SUPPLEMENTATION
  4. PRENATAL VITAMINS [Concomitant]
     Indication: PREGNANCY
     Dates: start: 201205
  5. BACTRIM [Concomitant]
     Indication: ANTIFUNGAL PROPHYLAXIS

REACTIONS (1)
  - Wrong technique in drug usage process [Not Recovered/Not Resolved]
